FAERS Safety Report 6599216-8 (Version None)
Quarter: 2010Q1

REPORT INFORMATION
  Report Type: 
  Country: None (occurrence: None)
  Receive Date: 20100224
  Receipt Date: 20100215
  Transmission Date: 20100710
  Serious: Yes (Hospitalization)
  Sender: FDA-Public Use
  Company Number: PHHY2010JP09078

PATIENT
  Sex: Male

DRUGS (4)
  1. TEGRETOL [Suspect]
     Indication: BIPOLAR I DISORDER
     Dosage: 600 MG DAILY
     Route: 048
     Dates: start: 20090901
  2. TEGRETOL [Suspect]
     Dosage: 300 MG DAILY
     Route: 048
  3. DOGMATYL [Suspect]
     Indication: BIPOLAR I DISORDER
     Dosage: 50 MG DAILY
     Route: 048
  4. BENZALIN [Concomitant]
     Indication: BIPOLAR I DISORDER
     Dosage: UNK
     Route: 048

REACTIONS (7)
  - CHEST PAIN [None]
  - DEHYDRATION [None]
  - ECZEMA [None]
  - FEELING ABNORMAL [None]
  - MOVEMENT DISORDER [None]
  - MUSCULAR WEAKNESS [None]
  - MUSCULOSKELETAL STIFFNESS [None]
